FAERS Safety Report 7704233-8 (Version None)
Quarter: 2011Q3

REPORT INFORMATION
  Report Type: 
  Country: None (occurrence: None)
  Receive Date: 20110823
  Receipt Date: 20110817
  Transmission Date: 20111222
  Serious: Yes (Other)
  Sender: FDA-Public Use
  Company Number: PL-TEVA-297249ISR

PATIENT
  Sex: Male
  Weight: 68 kg

DRUGS (2)
  1. GABAPENTIN [Suspect]
     Indication: PANCREATITIS CHRONIC
     Dosage: 900 MILLIGRAM;
     Route: 048
     Dates: start: 20110722, end: 20110726
  2. GABAPENTIN [Suspect]
     Indication: NEUROPATHY PERIPHERAL

REACTIONS (4)
  - DIZZINESS [None]
  - AMNESIA [None]
  - SEDATION [None]
  - HALLUCINATION [None]
